FAERS Safety Report 6061412-6 (Version None)
Quarter: 2009Q1

REPORT INFORMATION
  Report Type: 
  Country: None (occurrence: None)
  Receive Date: 20090202
  Receipt Date: 20090121
  Transmission Date: 20090719
  Serious: Yes (Other)
  Sender: FDA-Public Use
  Company Number: DE-JNJCH-2009001955

PATIENT
  Sex: Male

DRUGS (1)
  1. NICORETTE PFLASTER 24,9MG [Suspect]
     Indication: DRUG USE FOR UNKNOWN INDICATION
     Dosage: TEXT:UNSPECIFIED FOR 4 DAYS
     Route: 062

REACTIONS (4)
  - EXPIRED DRUG ADMINISTERED [None]
  - FATIGUE [None]
  - HALLUCINATION [None]
  - PYREXIA [None]
